FAERS Safety Report 7885045-1 (Version None)
Quarter: 2011Q4

REPORT INFORMATION
  Report Type: 
  Country: None (occurrence: None)
  Receive Date: 20111102
  Receipt Date: 20111028
  Transmission Date: 20120403
  Serious: Yes (Life-Threatening, Hospitalization)
  Sender: FDA-Public Use
  Company Number: JP-CEPHALON-2011001042

PATIENT
  Sex: Female
  Weight: 58 kg

DRUGS (10)
  1. RAMOSETRON HYDROCHLORIDE [Concomitant]
     Dates: start: 20110208
  2. INSULIN HUMAN [Concomitant]
     Dates: start: 20110207
  3. INSULIN DETEMIR [Concomitant]
     Dates: start: 20110207
  4. OMEPRAZOLE [Concomitant]
     Dates: start: 20110208
  5. FLUCONAZOLE [Concomitant]
     Dates: start: 20110208
  6. ENTECAVIR [Concomitant]
     Dates: start: 20110215
  7. SULFAMETHOXAZOLE SODIUM [Concomitant]
     Dates: start: 20110208
  8. URSODIOL [Concomitant]
     Dates: start: 20110228
  9. BENDAMUSTINE HCL [Suspect]
     Indication: B-CELL LYMPHOMA
     Route: 042
     Dates: start: 20110208
  10. SENNOSIDE A [Concomitant]
     Dates: start: 20110201

REACTIONS (6)
  - MALAISE [None]
  - PLATELET COUNT DECREASED [None]
  - HEPATITIS B [None]
  - LYMPHOCYTE COUNT DECREASED [None]
  - DECREASED APPETITE [None]
  - WHITE BLOOD CELL COUNT DECREASED [None]
